FAERS Safety Report 7404443-3 (Version None)
Quarter: 2011Q2

REPORT INFORMATION
  Report Type: 
  Country: None (occurrence: None)
  Receive Date: 20110408
  Receipt Date: 20110404
  Transmission Date: 20111010
  Serious: Yes (Disabling)
  Sender: FDA-Public Use
  Company Number: US-MERCK-1103USA02986

PATIENT
  Sex: Male

DRUGS (2)
  1. CISPLATIN [Concomitant]
     Route: 065
  2. IVEMEND [Suspect]
     Indication: PROPHYLAXIS OF NAUSEA AND VOMITING
     Route: 041
     Dates: start: 20110301, end: 20110301

REACTIONS (1)
  - CONVULSION [None]
